FAERS Safety Report 12093952 (Version 1)
Quarter: 2016Q1

REPORT INFORMATION
  Report Type: Report from Study
  Country: GB (occurrence: GB)
  Receive Date: 20160219
  Receipt Date: 20160219
  Transmission Date: 20160526
  Serious: Yes (Death, Other)
  Sender: FDA-Public Use
  Company Number: GB-ABBVIE-12P-167-0991682-00

PATIENT
  Age: 66 Year
  Sex: Male
  Weight: 76 kg

DRUGS (2)
  1. RITUXIMAB [Suspect]
     Active Substance: RITUXIMAB
     Indication: PRODUCT USED FOR UNKNOWN INDICATION
     Route: 065
  2. HUMIRA [Suspect]
     Active Substance: ADALIMUMAB
     Indication: RHEUMATOID ARTHRITIS
     Route: 058
     Dates: start: 20070717, end: 20090407

REACTIONS (9)
  - Mitral valve calcification [Unknown]
  - Pulmonary bulla [Unknown]
  - Bronchiectasis [Unknown]
  - Liver disorder [Unknown]
  - Arteriosclerosis coronary artery [Unknown]
  - Aortic valve calcification [Unknown]
  - Oesophageal squamous cell carcinoma stage III [Fatal]
  - Lymphadenopathy [Unknown]
  - Hepatic steatosis [Unknown]

NARRATIVE: CASE EVENT DATE: 20111123
